FAERS Safety Report 7215173-5 (Version None)
Quarter: 2011Q1

REPORT INFORMATION
  Report Type: 
  Country: None (occurrence: None)
  Receive Date: 20110107
  Receipt Date: 20101004
  Transmission Date: 20110831
  Serious: No
  Sender: FDA-Public Use
  Company Number: A0884796A

PATIENT
  Age: 45 Year
  Sex: Female

DRUGS (5)
  1. AMBIEN [Concomitant]
  2. IBUPROFEN [Concomitant]
  3. LOVAZA [Suspect]
     Dosage: 2CAP PER DAY
     Route: 048
     Dates: start: 20100401
  4. HYZAAR [Concomitant]
  5. MULTI-VITAMIN [Concomitant]

REACTIONS (2)
  - BACK PAIN [None]
  - TENDERNESS [None]
